FAERS Safety Report 9409462 (Version 2)
Quarter: 2013Q3

REPORT INFORMATION
  Report Type: Spontaneous
  Country: US (occurrence: US)
  Receive Date: 20130719
  Receipt Date: 20130819
  Transmission Date: 20140515
  Serious: Yes (Hospitalization, Other)
  Sender: FDA-Public Use
  Company Number: US-MERCK-1307USA009253

PATIENT
  Age: 50 Year
  Sex: Male

DRUGS (9)
  1. JANUMET [Suspect]
     Indication: DIABETES MELLITUS
     Dosage: UNK
     Route: 048
  2. AMLODIPINE [Concomitant]
  3. BENAZEPRIL HYDROCHLORIDE [Concomitant]
  4. ANDROGEL [Concomitant]
  5. ASPIRINE [Concomitant]
  6. CELESTONE (BETAMETHASONE SODIUM PHOSPHATE) [Concomitant]
  7. CIPROFLOXACIN HYDROCHLORIDE [Concomitant]
  8. HYDROXYZINE [Concomitant]
  9. NASONEX [Concomitant]

REACTIONS (1)
  - Pancreatitis acute [Recovered/Resolved]
